FAERS Safety Report 9913891 (Version 1)
Quarter: 2014Q1

REPORT INFORMATION
  Report Type: Spontaneous
  Country: US (occurrence: None)
  Receive Date: 20140219
  Receipt Date: 20140219
  Transmission Date: 20141002
  Serious: Yes (Life-Threatening, Other)
  Sender: FDA-Public Use
  Company Number: None

PATIENT
  Age: 55 Year
  Sex: Male
  Weight: 60.33 kg

DRUGS (2)
  1. AMBIEN [Suspect]
     Indication: SLEEP DISORDER
     Route: 048
  2. AMBIEN CR [Suspect]

REACTIONS (7)
  - Aggression [None]
  - Verbal abuse [None]
  - Violence-related symptom [None]
  - Anxiety [None]
  - Depression [None]
  - Suicidal ideation [None]
  - Loss of consciousness [None]
